FAERS Safety Report 9903188 (Version 2)
Quarter: 2014Q1

REPORT INFORMATION
  Report Type: Report from Study
  Country: US (occurrence: US)
  Receive Date: 20140217
  Receipt Date: 20140217
  Transmission Date: 20141002
  Serious: Yes (Hospitalization)
  Sender: FDA-Public Use
  Company Number: US-ABBVIE-10P-163-0689460-01

PATIENT
  Age: 41 Year
  Sex: Female

DRUGS (13)
  1. HUMIRA [Suspect]
     Indication: CROHN^S DISEASE
     Route: 058
     Dates: end: 20090924
  2. PROTONIX [Concomitant]
     Indication: OESOPHAGITIS
     Dates: start: 20090715
  3. PROTONIX [Concomitant]
     Indication: PROPHYLAXIS
  4. FLAGYL [Concomitant]
     Indication: CROHN^S DISEASE
     Dates: start: 20100924
  5. FLAGYL [Concomitant]
     Indication: INFECTION PROPHYLAXIS
     Dates: start: 20090708, end: 20090729
  6. CYANOCOBALAMIN [Concomitant]
     Indication: PRODUCT USED FOR UNKNOWN INDICATION
     Dates: start: 200907
  7. VITAMIN D [Concomitant]
     Indication: VITAMIN D DEFICIENCY
     Dates: start: 20090625
  8. CIPROFLOXACIN [Concomitant]
     Indication: CROHN^S DISEASE
     Dates: start: 20100924
  9. FOLIC ACID [Concomitant]
     Indication: PRODUCT USED FOR UNKNOWN INDICATION
     Dates: start: 20080831
  10. CORTICOSTEROIDS [Concomitant]
     Indication: CROHN^S DISEASE
  11. BUDESONIDE [Concomitant]
     Indication: PRODUCT USED FOR UNKNOWN INDICATION
     Dates: start: 20101011, end: 20101109
  12. NORPRAMIN [Concomitant]
     Indication: PRODUCT USED FOR UNKNOWN INDICATION
     Dates: start: 20090625
  13. POTASSIUM CHLORIDE [Concomitant]
     Indication: HYPOKALAEMIA
     Dates: start: 20090727

REACTIONS (1)
  - Small intestinal obstruction [Recovered/Resolved]
